FAERS Safety Report 10641420 (Version 1)
Quarter: 2014Q4

REPORT INFORMATION
  Report Type: Report from Study
  Country: US (occurrence: US)
  Receive Date: 20141209
  Receipt Date: 20141209
  Transmission Date: 20150529
  Serious: Yes (Other)
  Sender: FDA-Public Use
  Company Number: US-ABBVIE-14K-163-1316162-00

PATIENT
  Sex: Male

DRUGS (2)
  1. HUMIRA [Suspect]
     Active Substance: ADALIMUMAB
     Indication: RHEUMATOID ARTHRITIS
     Route: 065
     Dates: start: 201309, end: 20141028
  2. HUMIRA [Suspect]
     Active Substance: ADALIMUMAB
     Indication: PSORIATIC ARTHROPATHY
     Route: 065
     Dates: start: 20141130

REACTIONS (13)
  - Nasal congestion [Unknown]
  - Hypertension [Not Recovered/Not Resolved]
  - Feeling abnormal [Unknown]
  - Disease progression [Unknown]
  - Nasopharyngitis [Not Recovered/Not Resolved]
  - Muscle tightness [Not Recovered/Not Resolved]
  - Oropharyngeal pain [Unknown]
  - Balance disorder [Not Recovered/Not Resolved]
  - Tooth disorder [Not Recovered/Not Resolved]
  - Arthralgia [Not Recovered/Not Resolved]
  - Malaise [Unknown]
  - Bronchitis [Not Recovered/Not Resolved]
  - Bone disorder [Not Recovered/Not Resolved]

NARRATIVE: CASE EVENT DATE: 2014
